FAERS Safety Report 6892927-6 (Version None)
Quarter: 2010Q3

REPORT INFORMATION
  Report Type: 
  Country: None (occurrence: None)
  Receive Date: 20100731
  Receipt Date: 20081119
  Transmission Date: 20110219
  Serious: No
  Sender: FDA-Public Use
  Company Number: US-PFIZER INC-2008098289

PATIENT
  Sex: Female
  Weight: 54.43 kg

DRUGS (9)
  1. NEURONTIN [Suspect]
     Indication: COMPLEX REGIONAL PAIN SYNDROME
     Dates: start: 20080901
  2. NEURONTIN [Suspect]
     Indication: COELIAC DISEASE
  3. NEURONTIN [Suspect]
     Indication: FIBROMYALGIA
  4. NEURONTIN [Suspect]
     Indication: BACK DISORDER
  5. LYRICA [Suspect]
     Indication: COMPLEX REGIONAL PAIN SYNDROME
     Dates: start: 20081001
  6. LYRICA [Suspect]
     Indication: COELIAC DISEASE
  7. LYRICA [Suspect]
     Indication: FIBROMYALGIA
  8. LYRICA [Suspect]
     Indication: BACK DISORDER
  9. VICODIN [Concomitant]

REACTIONS (2)
  - DRUG INEFFECTIVE [None]
  - WEIGHT INCREASED [None]
